FAERS Safety Report 5949541-6 (Version None)
Quarter: 2008Q4

REPORT INFORMATION
  Report Type: 
  Country: None (occurrence: None)
  Receive Date: 20081112
  Receipt Date: 20081107
  Transmission Date: 20090506
  Serious: Yes (Life-Threatening)
  Sender: FDA-Public Use
  Company Number: PHHY2008IT27425

PATIENT
  Sex: Female

DRUGS (3)
  1. TOLEP [Suspect]
     Indication: PSYCHOTIC DISORDER
     Dosage: 2 DF/DAY
     Route: 048
     Dates: start: 20060101
  2. DEPAKOTE [Suspect]
     Dosage: 1 DF, UNK
     Route: 048
     Dates: start: 20081027, end: 20081030
  3. LORAZEPAM [Suspect]
     Dosage: 2.5 MG DAILY
     Route: 048
     Dates: start: 19880101

REACTIONS (3)
  - BURNING SENSATION MUCOSAL [None]
  - HYPOAESTHESIA [None]
  - VESTIBULAR DISORDER [None]
